FAERS Safety Report 11233410 (Version 2)
Quarter: 2015Q3

REPORT INFORMATION
  Report Type: Spontaneous
  Country: US (occurrence: US)
  Receive Date: 20150702
  Receipt Date: 20150720
  Transmission Date: 20151125
  Serious: Yes (Other)
  Sender: FDA-Public Use
  Company Number: US-ROCHE-1601635

PATIENT
  Age: 59 Year
  Sex: Female

DRUGS (12)
  1. BABY ASPIRIN [Concomitant]
     Active Substance: ASPIRIN
  2. AMLODIPINE [Concomitant]
     Active Substance: AMLODIPINE BESYLATE
  3. XARELTO [Concomitant]
     Active Substance: RIVAROXABAN
  4. ZOFRAN [Concomitant]
     Active Substance: ONDANSETRON HYDROCHLORIDE
  5. LUCENTIS [Suspect]
     Active Substance: RANIBIZUMAB
     Indication: DIABETIC RETINAL OEDEMA
     Route: 050
     Dates: start: 20150303, end: 20150420
  6. FUROSEMIDE. [Concomitant]
     Active Substance: FUROSEMIDE
  7. LANTUS [Concomitant]
     Active Substance: INSULIN GLARGINE
  8. ANASTROZOLE. [Concomitant]
     Active Substance: ANASTROZOLE
  9. LISINOPRIL. [Concomitant]
     Active Substance: LISINOPRIL
  10. PRAVASTATIN [Concomitant]
     Active Substance: PRAVASTATIN\PRAVASTATIN SODIUM
  11. GLIMEPIRIDE. [Concomitant]
     Active Substance: GLIMEPIRIDE
  12. ACETAMINOPHEN/HYDROCODONE [Concomitant]
     Active Substance: ACETAMINOPHEN\HYDROCODONE

REACTIONS (2)
  - Eye discharge [Unknown]
  - Cataract subcapsular [Unknown]

NARRATIVE: CASE EVENT DATE: 20150424
